FAERS Safety Report 6918205-4 (Version None)
Quarter: 2010Q3

REPORT INFORMATION
  Report Type: 
  Country: None (occurrence: None)
  Receive Date: 20100806
  Receipt Date: 20100727
  Transmission Date: 20110219
  Serious: Yes (Other)
  Sender: FDA-Public Use
  Company Number: 652182

PATIENT
  Age: 54 Year
  Sex: Male

DRUGS (3)
  1. HYDROMORPHONE HCL [Suspect]
     Indication: PAIN
     Dosage: 1 MG, INTRAVENOUS,
     Route: 042
  2. HYDROMORPHONE HCL INJ 2MG/ML (HYDROMORPHONE HYDROCHLORIDE) [Suspect]
     Indication: PAIN
     Dosage: 1 MG, INTRAVENOUS
     Route: 042
  3. MORPHINE SULFATE INJ (MORPHINE SULPHATE) [Concomitant]

REACTIONS (1)
  - RESPIRATORY DISORDER [None]
